FAERS Safety Report 20923876 (Version 1)
Quarter: 2022Q2

REPORT INFORMATION
  Report Type: Report from Study
  Country: CA (occurrence: CA)
  Receive Date: 20220607
  Receipt Date: 20220607
  Transmission Date: 20220721
  Serious: Yes (Hospitalization)
  Sender: FDA-Public Use
  Company Number: None

PATIENT
  Sex: Female

DRUGS (12)
  1. METHOTREXATE [Suspect]
     Active Substance: METHOTREXATE
     Indication: Product used for unknown indication
     Route: 065
  2. PREDNISONE [Suspect]
     Active Substance: PREDNISONE
     Indication: Product used for unknown indication
     Route: 065
  3. RITUXIMAB [Suspect]
     Active Substance: RITUXIMAB
     Indication: Rheumatoid arthritis
     Route: 042
  4. BENADRYL [Concomitant]
     Active Substance: DIPHENHYDRAMINE HYDROCHLORIDE
     Route: 048
  5. DESOXIMETASONE [Concomitant]
     Active Substance: DESOXIMETASONE
  6. DICLOFENAC [Concomitant]
     Active Substance: DICLOFENAC
  7. DILAUDID [Concomitant]
     Active Substance: HYDROMORPHONE HYDROCHLORIDE
  8. HYDROMORPHONE [Concomitant]
     Active Substance: HYDROMORPHONE
  9. LYRICA [Concomitant]
     Active Substance: PREGABALIN
     Dosage: 2 EVERY 1 DAYS
     Route: 065
  10. SOLU-MEDROL [Concomitant]
     Active Substance: METHYLPREDNISOLONE SODIUM SUCCINATE
     Route: 042
  11. TYLENOL [Concomitant]
     Active Substance: ACETAMINOPHEN
     Route: 048
  12. ZINC [Concomitant]
     Active Substance: ZINC
     Route: 048

REACTIONS (3)
  - Arthralgia [Unknown]
  - Infected skin ulcer [Unknown]
  - Ulcer [Unknown]
